FAERS Safety Report 11509562 (Version 1)
Quarter: 2015Q3

REPORT INFORMATION
  Report Type: Spontaneous
  Country: US (occurrence: US)
  Receive Date: 20150915
  Receipt Date: 20150915
  Transmission Date: 20151125
  Serious: No
  Sender: FDA-Public Use
  Company Number: US-JNJFOC-20150623113

PATIENT
  Sex: Female
  Weight: 68.04 kg

DRUGS (2)
  1. TYLENOL EXTRA STRENGTH [Suspect]
     Active Substance: ACETAMINOPHEN
     Indication: PAIN IN EXTREMITY
     Dosage: 6-8 CAPLETS/DAY
     Route: 048
     Dates: start: 20150601
  2. ALEVE [Concomitant]
     Active Substance: NAPROXEN SODIUM
     Indication: PAIN IN EXTREMITY
     Route: 065

REACTIONS (2)
  - Product use issue [Unknown]
  - Incorrect dose administered [Unknown]
